FAERS Safety Report 17168306 (Version 1)
Quarter: 2019Q4

REPORT INFORMATION
  Report Type: Spontaneous
  Country: SE (occurrence: SE)
  Receive Date: 20191218
  Receipt Date: 20191218
  Transmission Date: 20200122
  Serious: Yes (Hospitalization)
  Sender: FDA-Public Use
  Company Number: SE-009507513-1912SWE004776

PATIENT
  Sex: Female

DRUGS (3)
  1. OXASCAND [Suspect]
     Active Substance: OXAZEPAM
     Route: 048
     Dates: start: 20181007, end: 20181007
  2. PROPAVAN [Suspect]
     Active Substance: PROPIOMAZINE
     Dosage: DOSE: 500 MILLIGRAM
     Route: 048
     Dates: start: 20181007, end: 20181007
  3. MIRTAZAPINE. [Suspect]
     Active Substance: MIRTAZAPINE
     Dosage: DOSE: 1410 MILLIGRAM
     Route: 048
     Dates: start: 20181007, end: 20181007

REACTIONS (2)
  - Suicidal ideation [Unknown]
  - Intentional overdose [Unknown]

NARRATIVE: CASE EVENT DATE: 20181007
